FAERS Safety Report 15421394 (Version 1)
Quarter: 2018Q3

REPORT INFORMATION
  Report Type: Spontaneous
  Country: US (occurrence: US)
  Receive Date: 20180924
  Receipt Date: 20180924
  Transmission Date: 20181010
  Serious: No
  Sender: FDA-Public Use
  Company Number: US-ALLERGAN-1764556US

PATIENT
  Sex: Male

DRUGS (1)
  1. LINZESS [Suspect]
     Active Substance: LINACLOTIDE
     Indication: IRRITABLE BOWEL SYNDROME
     Dosage: 145 ?G, UNK
     Route: 065

REACTIONS (5)
  - Inappropriate schedule of drug administration [Unknown]
  - Diarrhoea [Unknown]
  - Medication error [Unknown]
  - Abdominal pain upper [Unknown]
  - Constipation [Unknown]
